FAERS Safety Report 10154120 (Version 2)
Quarter: 2014Q3

REPORT INFORMATION
  Report Type: Spontaneous
  Country: US (occurrence: None)
  Receive Date: 20140502
  Receipt Date: 20140709
  Transmission Date: 20150326
  Serious: Yes (Hospitalization)
  Sender: FDA-Public Use
  Company Number: UTC-047879

PATIENT
  Age: 50 Year
  Sex: Female

DRUGS (2)
  1. REVATIO (SILDENAFIL CITRATE) [Concomitant]
  2. TYVASO [Suspect]
     Active Substance: TREPROSTINIL
     Indication: COR PULMONALE CHRONIC
     Dosage: 18-54 MCG (4 IN 1 D) INHALATION
     Route: 055
     Dates: start: 20130531

REACTIONS (4)
  - Cough [None]
  - Throat irritation [None]
  - Haemorrhage [None]
  - Fatigue [None]

NARRATIVE: CASE EVENT DATE: 2014
